FAERS Safety Report 15558514 (Version 1)
Quarter: 2018Q4

REPORT INFORMATION
  Report Type: Spontaneous
  Country: US (occurrence: US)
  Receive Date: 20181026
  Receipt Date: 20181026
  Transmission Date: 20190205
  Serious: Yes (Disabling)
  Sender: FDA-Public Use
  Company Number: None

PATIENT
  Age: 41 Year
  Sex: Female
  Weight: 74.25 kg

DRUGS (1)
  1. AIMOVIG [Suspect]
     Active Substance: ERENUMAB-AOOE
     Indication: MIGRAINE
     Dosage: ?          QUANTITY:1 INJECTION(S);OTHER FREQUENCY:1 TIME A MONTH;?
     Route: 061
     Dates: start: 20181008, end: 20181009

REACTIONS (6)
  - Blood pressure increased [None]
  - Fatigue [None]
  - Heart rate increased [None]
  - Palpitations [None]
  - Impaired driving ability [None]
  - Headache [None]

NARRATIVE: CASE EVENT DATE: 20181008
